FAERS Safety Report 19265283 (Version 10)
Quarter: 2023Q1

REPORT INFORMATION
  Report Type: Spontaneous
  Country: US (occurrence: US)
  Receive Date: 20210517
  Receipt Date: 20230131
  Transmission Date: 20230417
  Serious: No
  Sender: FDA-Public Use
  Company Number: US-BRISTOL-MYERS SQUIBB COMPANY-BMS-2021-047768

PATIENT
  Age: 20 Year
  Sex: Female

DRUGS (4)
  1. ORENCIA [Suspect]
     Active Substance: ABATACEPT
     Indication: Rheumatoid arthritis
     Dosage: ONGOING
     Route: 058
     Dates: start: 20200319
  2. ORENCIA [Suspect]
     Active Substance: ABATACEPT
     Indication: Juvenile idiopathic arthritis
     Dosage: 125 MILLIGRAM, QWK
     Route: 058
     Dates: start: 202003
  3. ORENCIA [Suspect]
     Active Substance: ABATACEPT
     Dosage: 125 MILLIGRAM, QWK
     Route: 058
     Dates: start: 20200319
  4. ORENCIA [Suspect]
     Active Substance: ABATACEPT
     Route: 058
     Dates: start: 202003

REACTIONS (6)
  - Arthralgia [Unknown]
  - Product dose omission issue [Unknown]
  - Injection site bruising [Unknown]
  - Drug ineffective [Unknown]
  - Pain [Unknown]
  - Joint swelling [Unknown]
